FAERS Safety Report 16859775 (Version 1)
Quarter: 2019Q3

REPORT INFORMATION
  Report Type: Spontaneous
  Country: US (occurrence: US)
  Receive Date: 20190805
  Receipt Date: 20190805
  Transmission Date: 20191005
  Serious: No
  Sender: FDA-Public Use
  Company Number: None

PATIENT

DRUGS (1)
  1. HUMIRA [Suspect]
     Active Substance: ADALIMUMAB
     Indication: ASTHMA
     Dosage: ?          OTHER FREQUENCY:EVERY4WEEKS;?
     Route: 058
     Dates: start: 20190609

REACTIONS (2)
  - Dyspnoea [None]
  - Asthma [None]
